FAERS Safety Report 8799734 (Version 3)
Quarter: 2012Q4

REPORT INFORMATION
  Report Type: 
  Country: US (occurrence: US)
  Receive Date: 20120919
  Receipt Date: 20121015
  Transmission Date: 20130627
  Serious: Yes (Hospitalization)
  Sender: FDA-Public Use
  Company Number: US-BIOGENIDEC-2012BI037514

PATIENT
  Age: 54 Year
  Sex: Male

DRUGS (11)
  1. TYSABRI [Suspect]
     Indication: MULTIPLE SCLEROSIS
     Route: 042
     Dates: start: 20060703, end: 20070130
  2. TYSABRI [Suspect]
     Indication: MULTIPLE SCLEROSIS
     Route: 042
     Dates: start: 20070308, end: 20080414
  3. TYSABRI [Suspect]
     Indication: MULTIPLE SCLEROSIS
     Route: 042
     Dates: start: 20120430, end: 20120628
  4. AVONEX [Concomitant]
     Indication: MULTIPLE SCLEROSIS
     Route: 030
     Dates: start: 20000303, end: 20070129
  5. AVONEX [Concomitant]
     Indication: MULTIPLE SCLEROSIS
     Route: 030
     Dates: start: 20090207
  6. AVONEX [Concomitant]
     Indication: MULTIPLE SCLEROSIS
     Route: 030
     Dates: start: 20090301
  7. AVONEX [Concomitant]
     Indication: MULTIPLE SCLEROSIS
     Route: 030
     Dates: start: 20091101
  8. CHEMOTHERAPY (NOS) [Concomitant]
     Indication: HODGKIN^S DISEASE
  9. WELLBUTRIN [Concomitant]
     Indication: DEPRESSION
  10. SEROQUEL [Concomitant]
     Indication: INSOMNIA
  11. NEUPOGEN [Concomitant]
     Indication: WHITE BLOOD CELL COUNT DECREASED

REACTIONS (10)
  - Mobility decreased [Not Recovered/Not Resolved]
  - Pneumonia [Recovered/Resolved]
  - Cystitis [Recovered/Resolved]
  - Prostatic operation [Unknown]
  - Urinary retention [Unknown]
  - Anaesthetic complication [Unknown]
  - Musculoskeletal pain [Recovered/Resolved]
  - Skin infection [Recovered/Resolved]
  - Lung disorder [Recovered/Resolved]
  - Fall [Recovered/Resolved]
